FAERS Safety Report 10879415 (Version 2)
Quarter: 2015Q1

REPORT INFORMATION
  Report Type: Spontaneous
  Country: US (occurrence: US)
  Receive Date: 20150302
  Receipt Date: 20150331
  Transmission Date: 20150721
  Serious: Yes (Other)
  Sender: FDA-Public Use
  Company Number: US-BAYER-2015-028101

PATIENT
  Age: 24 Year
  Sex: Male

DRUGS (1)
  1. STIVARGA [Suspect]
     Active Substance: REGORAFENIB
     Indication: SARCOMA
     Dosage: UNK

REACTIONS (2)
  - Product use issue [None]
  - Blood bilirubin unconjugated increased [None]
